FAERS Safety Report 8406201-X (Version None)
Quarter: 2012Q2

REPORT INFORMATION
  Report Type: 
  Country: None (occurrence: None)
  Receive Date: 20120529
  Receipt Date: 20040324
  Transmission Date: 20120825
  Serious: Yes (Other)
  Sender: FDA-Public Use
  Company Number: JP-2012-12319

PATIENT

DRUGS (2)
  1. PLETAL [Suspect]
  2. TAKEPORON (LANSOPRAZOLE) [Concomitant]

REACTIONS (1)
  - ASPARTATE AMINOTRANSFERASE INCREASED [None]
